FAERS Safety Report 6779228-1 (Version None)
Quarter: 2010Q2

REPORT INFORMATION
  Report Type: 
  Country: None (occurrence: None)
  Receive Date: 20100618
  Receipt Date: 20100423
  Transmission Date: 20101027
  Serious: No
  Sender: FDA-Public Use
  Company Number: A0854621A

PATIENT
  Age: 67 Year
  Sex: Male

DRUGS (7)
  1. PROMACTA [Suspect]
     Indication: IDIOPATHIC THROMBOCYTOPENIC PURPURA
     Dosage: 50MG PER DAY
     Route: 048
     Dates: start: 20100311, end: 20100409
  2. CYCLOSPORINE [Concomitant]
  3. HYDROCORTISONE CREAM [Concomitant]
  4. NORVASC [Concomitant]
  5. PREDNISONE [Concomitant]
  6. LISINOPRIL [Concomitant]
  7. BENADRYL [Concomitant]

REACTIONS (4)
  - BACK PAIN [None]
  - LIP SWELLING [None]
  - PRURITUS [None]
  - RETCHING [None]
